FAERS Safety Report 10505763 (Version 2)
Quarter: 2014Q4

REPORT INFORMATION
  Report Type: Spontaneous
  Country: IT (occurrence: IT)
  Receive Date: 20141008
  Receipt Date: 20141015
  Transmission Date: 20150528
  Serious: Yes (Other)
  Sender: FDA-Public Use
  Company Number: PHHY2014IT129672

PATIENT
  Age: 56 Year
  Sex: Female

DRUGS (7)
  1. PAROXETINE [Suspect]
     Active Substance: PAROXETINE\PAROXETINE HYDROCHLORIDE
     Indication: SELF-INJURIOUS IDEATION
     Dosage: 40 MG, ONCE/SINGLE
     Route: 048
     Dates: start: 20140929, end: 20140929
  2. LASIX [Suspect]
     Active Substance: FUROSEMIDE
     Indication: SELF-INJURIOUS IDEATION
     Dosage: 2 DF, ONCE/SINGLE
     Route: 048
     Dates: start: 20140929, end: 20140929
  3. TAVOR [Suspect]
     Active Substance: LORAZEPAM
     Indication: SELF-INJURIOUS IDEATION
     Dosage: 1 DF, ONCE/SINGLE
     Route: 048
     Dates: start: 20140929, end: 20140929
  4. CORLENTOR [Suspect]
     Active Substance: IVABRADINE HYDROCHLORIDE
     Indication: SELF-INJURIOUS IDEATION
     Dosage: 8 DF, ONCE/SINGLE
     Route: 048
     Dates: start: 20140929, end: 20140929
  5. ALDACTONE [Suspect]
     Active Substance: SPIRONOLACTONE
     Indication: SELF-INJURIOUS IDEATION
     Dosage: 6 DF, ONCE/SINGLE
     Route: 048
     Dates: start: 20140929, end: 20140929
  6. METFORMIN [Suspect]
     Active Substance: METFORMIN HYDROCHLORIDE
     Indication: SELF-INJURIOUS IDEATION
     Dosage: 500 MG, ONCE/SINGLE
     Route: 048
     Dates: start: 20140929, end: 20140929
  7. FLUNOX [Suspect]
     Active Substance: FLURAZEPAM HYDROCHLORIDE
     Indication: SELF-INJURIOUS IDEATION
     Dosage: 3 DF, ONCE/SINGLE
     Route: 048
     Dates: start: 20140929, end: 20140929

REACTIONS (3)
  - Drug abuse [Recovering/Resolving]
  - Bradyphrenia [Recovering/Resolving]
  - Bradykinesia [Recovering/Resolving]

NARRATIVE: CASE EVENT DATE: 20140929
